FAERS Safety Report 9536899 (Version 1)
Quarter: 2013Q3

REPORT INFORMATION
  Report Type: Spontaneous
  Country: US (occurrence: None)
  Receive Date: 20130918
  Receipt Date: 20130918
  Transmission Date: 20140515
  Serious: Yes (Hospitalization)
  Sender: FDA-Public Use
  Company Number: None

PATIENT
  Age: 54 Year
  Sex: Female
  Weight: 100.93 kg

DRUGS (3)
  1. CARBOPLATIN [Suspect]
     Dates: end: 20111011
  2. DOCETAXEL [Suspect]
     Dates: end: 20111011
  3. TRASTUZUMAB [Suspect]

REACTIONS (1)
  - Neutropenia [None]
